FAERS Safety Report 20305488 (Version 1)
Quarter: 2022Q1

REPORT INFORMATION
  Report Type: Spontaneous
  Country: US (occurrence: US)
  Receive Date: 20220106
  Receipt Date: 20220106
  Transmission Date: 20220423
  Serious: No
  Sender: FDA-Public Use
  Company Number: US-AMNEAL PHARMACEUTICALS-2021-AMRX-00256

PATIENT
  Age: 49 Year
  Sex: Female
  Weight: 76 kg

DRUGS (10)
  1. ACTIVELLA [Suspect]
     Active Substance: ESTRADIOL\NORETHINDRONE ACETATE
     Indication: Uterine leiomyoma
     Dosage: 1 DOSAGE FORM, QD
     Route: 048
     Dates: start: 20190530, end: 20200507
  2. ACTIVELLA [Suspect]
     Active Substance: ESTRADIOL\NORETHINDRONE ACETATE
     Dosage: 1 DOSAGE FORM, QD
     Route: 048
     Dates: start: 20200507, end: 20201113
  3. ELAGOLIX [Suspect]
     Active Substance: ELAGOLIX
     Indication: Uterine leiomyoma
     Dosage: 300 MILLIGRAM, QD (MORNING DOSE)
     Route: 048
     Dates: start: 20190530, end: 20200507
  4. ELAGOLIX [Suspect]
     Active Substance: ELAGOLIX
     Dosage: 300 MILLIGRAM, QD (PM DOSE)
     Route: 048
     Dates: start: 20190530, end: 20200507
  5. ELAGOLIX [Suspect]
     Active Substance: ELAGOLIX
     Dosage: 300 MILLIGRAM, QD (MORNING DOSE)
     Route: 048
     Dates: start: 20200507, end: 20201113
  6. ELAGOLIX [Suspect]
     Active Substance: ELAGOLIX
     Dosage: 300 MILLIGRAM, QD (PM DOSE)
     Route: 048
     Dates: start: 20200507, end: 20201113
  7. IRON [Concomitant]
     Active Substance: IRON
     Indication: Anaemia
     Dosage: 200 MILLIGRAM, QD
     Route: 048
     Dates: start: 20190220
  8. CHOLECALCIFEROL [Concomitant]
     Active Substance: CHOLECALCIFEROL
     Indication: Vitamin D deficiency
     Dosage: 1000 INTERNATIONAL UNIT, 1 /WEEK
     Route: 048
     Dates: start: 20190220
  9. PROBIOTICS NOS [Concomitant]
     Active Substance: PROBIOTICS NOS
     Indication: General physical condition
     Dosage: 1 TABLETS, 1 /DAY
     Route: 048
     Dates: start: 201905
  10. FOSTEUM PLUS [Concomitant]
     Indication: Hot flush
     Dosage: UNK
     Route: 065
     Dates: start: 201911, end: 20210329

REACTIONS (1)
  - Bone density decreased [Not Recovered/Not Resolved]

NARRATIVE: CASE EVENT DATE: 20201016
